FAERS Safety Report 19837005 (Version 2)
Quarter: 2021Q4

REPORT INFORMATION
  Report Type: Report from Study
  Country: None (occurrence: US)
  Receive Date: 20210916
  Receipt Date: 20211013
  Transmission Date: 20220303
  Serious: Yes (Hospitalization, Other)
  Sender: FDA-Public Use
  Company Number: US-ABBVIE-21K-163-4081230-00

PATIENT
  Sex: Male

DRUGS (2)
  1. IMBRUVICA [Suspect]
     Active Substance: IBRUTINIB
     Indication: Chronic lymphocytic leukaemia (in remission)
     Route: 048
     Dates: start: 20191028
  2. IMBRUVICA [Suspect]
     Active Substance: IBRUTINIB
     Indication: Chronic lymphocytic leukaemia
     Route: 048
     Dates: start: 201911

REACTIONS (18)
  - Hospitalisation [Unknown]
  - Knee arthroplasty [Unknown]
  - Loss of consciousness [Unknown]
  - Food allergy [Unknown]
  - Pain in extremity [Unknown]
  - Vomiting [Unknown]
  - Dehydration [Unknown]
  - Peripheral coldness [Unknown]
  - Gastrointestinal infection [Unknown]
  - Procedural pain [Unknown]
  - White blood cell count increased [Unknown]
  - Gallbladder disorder [Unknown]
  - Hepatic enzyme increased [Unknown]
  - Exposure to contaminated water [Unknown]
  - Joint swelling [Unknown]
  - Loss of personal independence in daily activities [Unknown]
  - Depression [Unknown]
  - Infection [Unknown]
